FAERS Safety Report 23414381 (Version 1)
Quarter: 2024Q1

REPORT INFORMATION
  Report Type: Report from Study
  Country: NL (occurrence: NL)
  Receive Date: 20240118
  Receipt Date: 20240118
  Transmission Date: 20240410
  Serious: Yes (Hospitalization)
  Sender: FDA-Public Use
  Company Number: NL-ABBVIE-5296135

PATIENT
  Sex: Female

DRUGS (12)
  1. CARBIDOPA\LEVODOPA [Suspect]
     Active Substance: CARBIDOPA\LEVODOPA
     Indication: Parkinson^s disease
     Dosage: MD: 2.0 ML, CD: 3.4 ML/HR, ED: 0.9 ML, CND: 2.8 ML/HR, END: 1.0 ML?REMAINS AT 24 HOURS
     Route: 050
  2. CARBIDOPA\LEVODOPA [Suspect]
     Active Substance: CARBIDOPA\LEVODOPA
     Dosage: MD: 1.5 ML, CD: 3.4 ML/HR, ED: 0.8 ML?REMAINS AT 16 HOURS
     Route: 050
  3. CARBIDOPA\LEVODOPA [Suspect]
     Active Substance: CARBIDOPA\LEVODOPA
     Dosage: CND: 2.9 ML/H, END: 1.0 ML; DURATION TEXT: REMAINS AT 24 HOURS
     Route: 050
  4. CARBIDOPA\LEVODOPA [Suspect]
     Active Substance: CARBIDOPA\LEVODOPA
     Dosage: CND: 2.7 ML/HR, END: 1.0 ML?REMAINS AT 24 HOURS
     Route: 050
  5. CARBIDOPA\LEVODOPA [Suspect]
     Active Substance: CARBIDOPA\LEVODOPA
     Route: 050
  6. CARBIDOPA\LEVODOPA [Suspect]
     Active Substance: CARBIDOPA\LEVODOPA
     Dosage: MD: 1.5 ML, CD: 3.4 ML/HR, ED: 0.9 ML
     Route: 050
  7. CARBIDOPA\LEVODOPA [Suspect]
     Active Substance: CARBIDOPA\LEVODOPA
     Dosage: MD: 1.5 ML, CD: 3.4 ML/HR, ED: 0.9 ML; REMAINS AT 24 HOURS
     Route: 050
  8. CARBIDOPA\LEVODOPA [Suspect]
     Active Substance: CARBIDOPA\LEVODOPA
     Dosage: MD: 2.0 ML, CD: 3.4 ML/H, ED: 0.9 ML, CND: 3.0 ML/H, END: 1.0 ML,? REMAINS AT 24 HOURS
     Route: 050
     Dates: start: 20231002, end: 20231227
  9. CARBIDOPA\LEVODOPA [Suspect]
     Active Substance: CARBIDOPA\LEVODOPA
     Dosage: REMAINS AT 24 HOURS
     Route: 050
     Dates: start: 20210517
  10. CARBIDOPA\LEVODOPA [Suspect]
     Active Substance: CARBIDOPA\LEVODOPA
     Dosage: CND: 3.0 ML/H, END: 1.0 ML,? REMAINS AT 24 HOURS
     Route: 050
     Dates: start: 20230822, end: 20231002
  11. CARBIDOPA\LEVODOPA [Suspect]
     Active Substance: CARBIDOPA\LEVODOPA
     Dosage: MD: 2.0 ML, CD: 3.4 ML/H, ED: 0.9 ML, CND: 3.0 ML/H, END: 1.0 ML
     Route: 050
     Dates: start: 20231227
  12. SINEMET [Concomitant]
     Active Substance: CARBIDOPA\LEVODOPA
     Indication: Parkinson^s disease
     Dosage: TIME INTERVAL: 0.16666667 DAYS: FORM STRENGTH: 62.5 UNKNOWN UNIT
     Route: 065

REACTIONS (63)
  - Stoma site inflammation [Not Recovered/Not Resolved]
  - Pain [Not Recovered/Not Resolved]
  - Device issue [Not Recovered/Not Resolved]
  - Restlessness [Not Recovered/Not Resolved]
  - Hyperhidrosis [Not Recovered/Not Resolved]
  - Stoma site discharge [Not Recovered/Not Resolved]
  - Unevaluable event [Not Recovered/Not Resolved]
  - Mobility decreased [Not Recovered/Not Resolved]
  - Poor quality sleep [Recovering/Resolving]
  - Depressed mood [Not Recovered/Not Resolved]
  - Protein intolerance [Not Recovered/Not Resolved]
  - Burning sensation [Not Recovered/Not Resolved]
  - Constipation [Not Recovered/Not Resolved]
  - Stoma site erythema [Not Recovered/Not Resolved]
  - Communication disorder [Not Recovered/Not Resolved]
  - Tremor [Not Recovered/Not Resolved]
  - Stoma site discharge [Not Recovered/Not Resolved]
  - Therapeutic response shortened [Not Recovered/Not Resolved]
  - Stoma site oedema [Not Recovered/Not Resolved]
  - Impaired driving ability [Not Recovered/Not Resolved]
  - Muscle rigidity [Not Recovered/Not Resolved]
  - Crying [Not Recovered/Not Resolved]
  - Arthralgia [Not Recovered/Not Resolved]
  - Dyspnoea [Recovering/Resolving]
  - Nausea [Recovering/Resolving]
  - Asthenia [Not Recovered/Not Resolved]
  - On and off phenomenon [Not Recovered/Not Resolved]
  - Myalgia [Not Recovered/Not Resolved]
  - Unevaluable event [Recovering/Resolving]
  - Dyskinesia [Recovered/Resolved]
  - Fatigue [Not Recovered/Not Resolved]
  - Feeling abnormal [Not Recovered/Not Resolved]
  - Facial pain [Not Recovered/Not Resolved]
  - Adverse food reaction [Not Recovered/Not Resolved]
  - Bowel movement irregularity [Recovering/Resolving]
  - Nervousness [Not Recovered/Not Resolved]
  - Wrong technique in device usage process [Recovered/Resolved]
  - Anxiety [Not Recovered/Not Resolved]
  - Therapeutic product effect decreased [Not Recovered/Not Resolved]
  - Memory impairment [Not Recovered/Not Resolved]
  - Stoma site haemorrhage [Recovering/Resolving]
  - Abnormal dreams [Not Recovered/Not Resolved]
  - Vision blurred [Not Recovered/Not Resolved]
  - Dry mouth [Not Recovered/Not Resolved]
  - Stoma site discharge [Not Recovered/Not Resolved]
  - Depressed mood [Not Recovered/Not Resolved]
  - Restless legs syndrome [Not Recovered/Not Resolved]
  - Dysphagia [Not Recovered/Not Resolved]
  - Fine motor skill dysfunction [Not Recovered/Not Resolved]
  - Dystonia [Not Recovered/Not Resolved]
  - Nocturia [Not Recovered/Not Resolved]
  - Oral discomfort [Not Recovered/Not Resolved]
  - Therapeutic product effect incomplete [Not Recovered/Not Resolved]
  - Loss of personal independence in daily activities [Not Recovered/Not Resolved]
  - Abdominal discomfort [Not Recovered/Not Resolved]
  - Muscular weakness [Not Recovered/Not Resolved]
  - Movement disorder [Not Recovered/Not Resolved]
  - Stoma site pain [Not Recovered/Not Resolved]
  - Embedded device [Recovering/Resolving]
  - Pain [Not Recovered/Not Resolved]
  - Respiration abnormal [Not Recovered/Not Resolved]
  - Medical device pain [Recovered/Resolved]
  - Medical device discomfort [Not Recovered/Not Resolved]

NARRATIVE: CASE EVENT DATE: 20240105
